FAERS Safety Report 19022190 (Version 1)
Quarter: 2021Q1

REPORT INFORMATION
  Report Type: Spontaneous
  Country: GB (occurrence: GB)
  Receive Date: 20210317
  Receipt Date: 20210317
  Transmission Date: 20210420
  Serious: Yes (Hospitalization)
  Sender: FDA-Public Use
  Company Number: GB-ENDO PHARMACEUTICALS INC-2021-001651

PATIENT
  Age: 32 Year
  Sex: Male

DRUGS (1)
  1. KETALAR [Suspect]
     Active Substance: KETAMINE HYDROCHLORIDE
     Indication: PRODUCT USED FOR UNKNOWN INDICATION
     Dosage: UNK UNKNOWN, DAILY (FOR THE PAST 15 YEARS)
     Route: 045

REACTIONS (7)
  - Hydronephrosis [Not Recovered/Not Resolved]
  - Biliary sepsis [Unknown]
  - Biliary tract disorder [Not Recovered/Not Resolved]
  - Cholangitis sclerosing [Not Recovered/Not Resolved]
  - Drug abuse [Recovered/Resolved]
  - Bladder disorder [Not Recovered/Not Resolved]
  - Cholangitis infective [Not Recovered/Not Resolved]
